FAERS Safety Report 16660480 (Version 1)
Quarter: 2019Q3

REPORT INFORMATION
  Report Type: Spontaneous
  Country: US (occurrence: US)
  Receive Date: 20190802
  Receipt Date: 20190802
  Transmission Date: 20191004
  Serious: Yes (Other)
  Sender: FDA-Public Use
  Company Number: US-HETERO-HET2019US01034

PATIENT
  Age: 66 Year
  Sex: Female

DRUGS (1)
  1. LITHIUM. [Suspect]
     Active Substance: LITHIUM
     Indication: BIPOLAR DISORDER
     Dosage: UNK
     Route: 065

REACTIONS (3)
  - Hypercalcaemia [Recovered/Resolved]
  - Parathyroid tumour benign [Recovered/Resolved]
  - Hyperparathyroidism [Recovered/Resolved]
